FAERS Safety Report 6613293-7 (Version None)
Quarter: 2010Q1

REPORT INFORMATION
  Report Type: 
  Country: None (occurrence: None)
  Receive Date: 20100304
  Receipt Date: 20100221
  Transmission Date: 20100710
  Serious: Yes (Other)
  Sender: FDA-Public Use
  Company Number: PHHY2010GB10615

PATIENT
  Sex: Male

DRUGS (1)
  1. CLOZARIL [Suspect]
     Indication: SCHIZOPHRENIA
     Dosage: UNK
     Dates: start: 20100215

REACTIONS (4)
  - BLOOD PRESSURE SYSTOLIC INCREASED [None]
  - HEART RATE INCREASED [None]
  - OROPHARYNGEAL PAIN [None]
  - PYREXIA [None]
